FAERS Safety Report 24652124 (Version 1)
Quarter: 2024Q4

REPORT INFORMATION
  Report Type: Report from Study
  Country: US (occurrence: US)
  Receive Date: 20241122
  Receipt Date: 20241122
  Transmission Date: 20250115
  Serious: Yes (Other)
  Sender: UCB
  Company Number: US-UCBSA-2024060559

PATIENT
  Age: 55 Year
  Sex: Female

DRUGS (1)
  1. LACOSAMIDE [Suspect]
     Active Substance: LACOSAMIDE
     Indication: Seizure
     Dosage: 100 MILLIGRAM, 2X/DAY (BID), 1 TABLET

REACTIONS (2)
  - Eye disorder [Unknown]
  - Eye operation [Unknown]

NARRATIVE: CASE EVENT DATE: 20241101
